FAERS Safety Report 25242344 (Version 1)
Quarter: 2025Q2

REPORT INFORMATION
  Report Type: Spontaneous
  Country: US (occurrence: US)
  Receive Date: 20250427
  Receipt Date: 20250427
  Transmission Date: 20250716
  Serious: No
  Sender: GLAXOSMITHKLINE
  Company Number: US-GSK-US2025049390

PATIENT
  Sex: Female

DRUGS (1)
  1. ARNUITY ELLIPTA [Suspect]
     Active Substance: FLUTICASONE FUROATE
     Indication: Product used for unknown indication
     Dosage: 100 UG, BID, 2 100 MCG ORAL INHALATIONS DAILY
     Route: 055
     Dates: start: 20250423

REACTIONS (1)
  - Prescribed overdose [Unknown]

NARRATIVE: CASE EVENT DATE: 20250423
